FAERS Safety Report 15691430 (Version 1)
Quarter: 2018Q4

REPORT INFORMATION
  Report Type: Spontaneous
  Country: US (occurrence: US)
  Receive Date: 20181205
  Receipt Date: 20181205
  Transmission Date: 20190205
  Serious: Yes (Hospitalization, Other)
  Sender: FDA-Public Use
  Company Number: US-ASTRAZENECA-2009BM07715

PATIENT
  Age: 480 Month
  Sex: Female
  Weight: 107.5 kg

DRUGS (30)
  1. BYETTA [Suspect]
     Active Substance: EXENATIDE
     Dosage: UNK
     Route: 065
     Dates: start: 20070326, end: 20070715
  2. ALBUTEROL. [Concomitant]
     Active Substance: ALBUTEROL
  3. NEXIUM [Concomitant]
     Active Substance: ESOMEPRAZOLE MAGNESIUM
     Dosage: 40 MG, QD
  4. XOPENEX [Concomitant]
     Active Substance: LEVALBUTEROL HYDROCHLORIDE
     Indication: BRONCHITIS
     Dosage: UNK
     Route: 055
     Dates: start: 20090103
  5. GLUCOTROL [Concomitant]
     Active Substance: GLIPIZIDE
  6. ATROVENT [Concomitant]
     Active Substance: IPRATROPIUM BROMIDE
  7. PHENERGAN [Concomitant]
     Active Substance: PROMETHAZINE HYDROCHLORIDE
  8. BYETTA [Suspect]
     Active Substance: EXENATIDE
     Dosage: 5 IU, TID
     Route: 065
  9. SOMA [Concomitant]
     Active Substance: CARISOPRODOL
  10. PERCOCET [Concomitant]
     Active Substance: ACETAMINOPHEN\OXYCODONE HYDROCHLORIDE
  11. AMBIEN [Concomitant]
     Active Substance: ZOLPIDEM TARTRATE
  12. BYETTA [Suspect]
     Active Substance: EXENATIDE
     Dosage: UNK
     Route: 065
     Dates: start: 2006
  13. BYETTA [Suspect]
     Active Substance: EXENATIDE
     Route: 065
  14. NITROGLYCERINE [Concomitant]
     Active Substance: NITROGLYCERIN
  15. HYDROCHLOROTHIAZIDE. [Concomitant]
     Active Substance: HYDROCHLOROTHIAZIDE
  16. ASA [Concomitant]
     Active Substance: ASPIRIN
  17. INSULIN [Concomitant]
     Active Substance: INSULIN NOS
     Dosage: UNK
     Dates: start: 20070912
  18. MORPHINE [Concomitant]
     Active Substance: MORPHINE
     Dosage: UNK
     Dates: start: 20070912
  19. BYETTA [Suspect]
     Active Substance: EXENATIDE
     Dosage: UNK
     Route: 065
     Dates: start: 20081020, end: 20090324
  20. EXENATIDE 10MCG PEN, DISPOSABLE DEVICE [Concomitant]
     Active Substance: EXENATIDE
  21. ZESTRIL [Concomitant]
     Active Substance: LISINOPRIL
  22. XANAX [Concomitant]
     Active Substance: ALPRAZOLAM
  23. ZOCOR [Concomitant]
     Active Substance: SIMVASTATIN
  24. ZOFRAN [Concomitant]
     Active Substance: ONDANSETRON HYDROCHLORIDE
  25. ATROVENT [Concomitant]
     Active Substance: IPRATROPIUM BROMIDE
     Dosage: UNK
     Route: 055
  26. BYETTA [Suspect]
     Active Substance: EXENATIDE
     Dosage: UNK
     Route: 065
     Dates: start: 20080107, end: 20080725
  27. GLUCOPHAGE [Concomitant]
     Active Substance: METFORMIN HYDROCHLORIDE
  28. ESTRADIOL. [Concomitant]
     Active Substance: ESTRADIOL
  29. LANTUS [Concomitant]
     Active Substance: INSULIN GLARGINE
  30. NOVOLIN [Concomitant]
     Active Substance: INSULIN HUMAN

REACTIONS (15)
  - Acute kidney injury [Unknown]
  - Syncope [Unknown]
  - Renal failure [Unknown]
  - Dehydration [Unknown]
  - Pancreatitis acute [Unknown]
  - Gastroenteritis [Unknown]
  - Drug abuse [Not Recovered/Not Resolved]
  - Bronchitis [Unknown]
  - Vomiting [Unknown]
  - Off label use [Unknown]
  - Loss of consciousness [Recovered/Resolved]
  - Chronic kidney disease [Unknown]
  - Abdominal pain [Unknown]
  - Nausea [Unknown]
  - Hyperglycaemia [Unknown]

NARRATIVE: CASE EVENT DATE: 200710
